FAERS Safety Report 8461532-2 (Version None)
Quarter: 2012Q2

REPORT INFORMATION
  Report Type: 
  Country: None (occurrence: None)
  Receive Date: 20120625
  Receipt Date: 20120613
  Transmission Date: 20120825
  Serious: Yes (Life-Threatening, Hospitalization)
  Sender: FDA-Public Use
  Company Number: US-SAVIENT-2012S1000057

PATIENT
  Age: 66 Year
  Sex: Male

DRUGS (1)
  1. KRYSTEXXA [Suspect]
     Indication: GOUT
     Route: 042
     Dates: start: 20120201, end: 20120607

REACTIONS (4)
  - CARDIAC ARREST [None]
  - CARDIAC PROCEDURE COMPLICATION [None]
  - CEREBROVASCULAR ACCIDENT [None]
  - MYOCARDIAL INFARCTION [None]
